FAERS Safety Report 19900861 (Version 1)
Quarter: 2021Q3

REPORT INFORMATION
  Report Type: Spontaneous
  Country: CO (occurrence: CO)
  Receive Date: 20210929
  Receipt Date: 20210929
  Transmission Date: 20211014
  Serious: Yes (Other)
  Sender: FDA-Public Use
  Company Number: CO-BRISTOL-MYERS SQUIBB COMPANY-BMS-2021-098768

PATIENT
  Age: 87 Year
  Sex: Female

DRUGS (2)
  1. APIXABAN [Suspect]
     Active Substance: APIXABAN
     Indication: HAEMORRHAGE PROPHYLAXIS
     Dosage: 10 MG EACH 12 HRS FOR 7 DAYS
     Route: 065
  2. APIXABAN [Suspect]
     Active Substance: APIXABAN
     Dosage: 5 MG EACH 12 HRS UPTO 3 MONTHS
     Route: 065

REACTIONS (2)
  - Intentional product use issue [Unknown]
  - Thrombosis [Unknown]
